FAERS Safety Report 9683987 (Version 2)
Quarter: 2013Q4

REPORT INFORMATION
  Report Type: Spontaneous
  Country: US (occurrence: US)
  Receive Date: 20131112
  Receipt Date: 20131112
  Transmission Date: 20140711
  Serious: No
  Sender: FDA-Public Use
  Company Number: US-FOUGERA-2013FO000282

PATIENT
  Sex: Male
  Weight: 108.05 kg

DRUGS (4)
  1. OXISTAT [Suspect]
     Indication: TINEA INFECTION
     Route: 061
  2. LIDOCAINE [Concomitant]
  3. NULL [Concomitant]
  4. ACETYLSALICYLIC ACID [Concomitant]
     Indication: PROPHYLAXIS
     Route: 048

REACTIONS (3)
  - Throat tightness [Unknown]
  - Urticaria [Recovered/Resolved]
  - Pruritus [Unknown]
